FAERS Safety Report 13815151 (Version 1)
Quarter: 2017Q3

REPORT INFORMATION
  Report Type: Spontaneous
  Country: US (occurrence: US)
  Receive Date: 20170731
  Receipt Date: 20170731
  Transmission Date: 20171127
  Serious: No
  Sender: FDA-Public Use
  Company Number: US-BIOGEN-2017BI00435833

PATIENT
  Age: 41 Year
  Sex: Female

DRUGS (1)
  1. TYSABRI [Suspect]
     Active Substance: NATALIZUMAB
     Indication: MULTIPLE SCLEROSIS
     Route: 065

REACTIONS (7)
  - Intervertebral disc protrusion [Unknown]
  - Migraine [Unknown]
  - Gait disturbance [Unknown]
  - Muscular weakness [Unknown]
  - Muscle atrophy [Unknown]
  - Mobility decreased [Unknown]
  - Intentional product use issue [Unknown]
